FAERS Safety Report 23889347 (Version 1)
Quarter: 2024Q2

REPORT INFORMATION
  Report Type: Spontaneous
  Country: US (occurrence: None)
  Receive Date: 20240523
  Receipt Date: 20240523
  Transmission Date: 20240715
  Serious: Yes (Hospitalization, Other)
  Sender: FDA-Public Use
  Company Number: None

PATIENT
  Age: 58 Year
  Sex: Female
  Weight: 82.1 kg

DRUGS (1)
  1. KANJINTI [Suspect]
     Active Substance: TRASTUZUMAB-ANNS
     Indication: Breast cancer stage IV
     Dosage: OTHER FREQUENCY : ONCE;?
     Route: 042
     Dates: start: 20240405

REACTIONS (4)
  - Feeling cold [None]
  - Body temperature increased [None]
  - Chills [None]
  - Lethargy [None]

NARRATIVE: CASE EVENT DATE: 20240405
